FAERS Safety Report 9484235 (Version 5)
Quarter: 2013Q4

REPORT INFORMATION
  Report Type: Report from Study
  Country: RU (occurrence: RU)
  Receive Date: 20130828
  Receipt Date: 20131024
  Transmission Date: 20140711
  Serious: Yes (Hospitalization, Other)
  Sender: FDA-Public Use
  Company Number: RU-ROCHE-1260724

PATIENT
  Age: 42 Year
  Sex: Male
  Weight: 87 kg

DRUGS (14)
  1. PEG-INTERFERON ALFA 2A [Suspect]
     Indication: CHRONIC HEPATITIS C
     Route: 058
     Dates: start: 20121123, end: 20130726
  2. RIBAVIRIN [Suspect]
     Indication: CHRONIC HEPATITIS C
     Route: 048
     Dates: start: 20121123, end: 20121123
  3. RIBAVIRIN [Suspect]
     Route: 048
     Dates: start: 20121124, end: 20130319
  4. RIBAVIRIN [Suspect]
     Route: 048
     Dates: start: 20130320, end: 20130405
  5. RIBAVIRIN [Suspect]
     Route: 048
     Dates: start: 20130406, end: 20130616
  6. RIBAVIRIN [Suspect]
     Dosage: 1 DF QAM
     Route: 048
     Dates: start: 20130617, end: 20130801
  7. RIBAVIRIN [Suspect]
     Dosage: 2 DF QPM
     Route: 048
     Dates: start: 20130617, end: 20130731
  8. BOCEPREVIR [Suspect]
     Indication: CHRONIC HEPATITIS C
     Route: 048
     Dates: start: 20121221, end: 20121221
  9. BOCEPREVIR [Suspect]
     Route: 048
     Dates: start: 20121222, end: 20130609
  10. BOCEPREVIR [Suspect]
     Route: 048
     Dates: start: 20121221, end: 20130609
  11. BOCEPREVIR [Suspect]
     Route: 048
     Dates: start: 20121221, end: 20130609
  12. BOCEPREVIR [Suspect]
     Route: 048
     Dates: start: 20130715, end: 20130801
  13. BOCEPREVIR [Suspect]
     Route: 048
     Dates: start: 20130715, end: 20130801
  14. BOCEPREVIR [Suspect]
     Route: 048
     Dates: start: 20130715, end: 20130731

REACTIONS (1)
  - Deep vein thrombosis [Recovered/Resolved]
